FAERS Safety Report 7978743-2 (Version None)
Quarter: 2011Q4

REPORT INFORMATION
  Report Type: 
  Country: None (occurrence: None)
  Receive Date: 20111214
  Receipt Date: 20111212
  Transmission Date: 20120403
  Serious: Yes (Hospitalization)
  Sender: FDA-Public Use
  Company Number: IT-PFIZER INC-K201101156

PATIENT
  Age: 69 Year
  Sex: Female

DRUGS (7)
  1. SOLOSA [Concomitant]
     Dosage: UNK
  2. LERCANIDIPINE [Concomitant]
     Dosage: UNK
  3. ESOMEPRAZOLE [Concomitant]
     Dosage: UNK
  4. LYRICA [Concomitant]
     Dosage: UNK
  5. ALTACE [Suspect]
     Indication: HYPERTENSION
     Dosage: 5 MG, 1X/DAY
     Route: 048
     Dates: start: 20080101, end: 20110508
  6. METFORMIN [Concomitant]
     Indication: TYPE 2 DIABETES MELLITUS
     Dosage: UNK
  7. ATENOLOL [Concomitant]
     Indication: HYPERTENSION
     Dosage: UNK

REACTIONS (3)
  - RENAL FAILURE ACUTE [None]
  - HYPERKALAEMIA [None]
  - BLOOD GLUCOSE ABNORMAL [None]
